FAERS Safety Report 22157146 (Version 1)
Quarter: 2023Q1

REPORT INFORMATION
  Report Type: Spontaneous
  Country: US (occurrence: None)
  Receive Date: 20230329
  Receipt Date: 20230329
  Transmission Date: 20230418
  Serious: Yes (Other)
  Sender: FDA-Public Use
  Company Number: None

PATIENT
  Age: 68 Year
  Sex: Male
  Weight: 84.8 kg

DRUGS (1)
  1. REVLIMID [Suspect]
     Active Substance: LENALIDOMIDE
     Indication: Plasma cell myeloma
     Dosage: FREQUENCY : DAILY;?
     Route: 048
     Dates: start: 20230110

REACTIONS (5)
  - Nasopharyngitis [None]
  - Oropharyngeal pain [None]
  - Cough [None]
  - Fatigue [None]
  - Therapy interrupted [None]

NARRATIVE: CASE EVENT DATE: 20230321
